FAERS Safety Report 24288686 (Version 1)
Quarter: 2024Q3

REPORT INFORMATION
  Report Type: Other
  Country: PL (occurrence: PL)
  Receive Date: 20240906
  Receipt Date: 20240906
  Transmission Date: 20241016
  Serious: Yes (Death, Hospitalization, Congenital Anomaly, Other)
  Sender: BIONPHARMA
  Company Number: PL-Bion-013768

PATIENT
  Sex: Female

DRUGS (1)
  1. AZITHROMYCIN [Suspect]
     Active Substance: AZITHROMYCIN
     Indication: Preterm premature rupture of membranes

REACTIONS (7)
  - Foetal exposure during pregnancy [Fatal]
  - Death neonatal [Fatal]
  - Oesophageal atresia [Fatal]
  - Atrioventricular septal defect [Fatal]
  - Caudal regression syndrome [Fatal]
  - Heterotaxia [Fatal]
  - Low birth weight baby [Fatal]
